FAERS Safety Report 12634085 (Version 1)
Quarter: 2016Q3

REPORT INFORMATION
  Report Type: Spontaneous
  Country: US (occurrence: None)
  Receive Date: 20160808
  Receipt Date: 20160808
  Transmission Date: 20161109
  Serious: Yes (Death)
  Sender: FDA-Public Use
  Company Number: None

PATIENT
  Age: 64 Year
  Sex: Female

DRUGS (10)
  1. TOPIRAMATE. [Concomitant]
     Active Substance: TOPIRAMATE
  2. CLONAZEPAM. [Concomitant]
     Active Substance: CLONAZEPAM
  3. QVAR [Concomitant]
     Active Substance: BECLOMETHASONE DIPROPIONATE
  4. TRUETEST [Concomitant]
  5. METFORMIN [Concomitant]
     Active Substance: METFORMIN HYDROCHLORIDE
  6. LANCET ULTRA MIS THIN [Concomitant]
  7. CAPECITABINE 500MG [Suspect]
     Active Substance: CAPECITABINE
     Indication: PANCREATIC CARCINOMA
     Dosage: CAPECITABINE 1000MG DAILY FOR 14 DAYS PO
     Route: 048
  8. AMITRIPTYLIN [Concomitant]
     Active Substance: AMITRIPTYLINE
  9. DIPHENHYDRAM [Concomitant]
  10. SERTRALINE [Concomitant]
     Active Substance: SERTRALINE HYDROCHLORIDE

REACTIONS (1)
  - Pancreatic carcinoma [None]

NARRATIVE: CASE EVENT DATE: 20160718
